FAERS Safety Report 17346835 (Version 1)
Quarter: 2020Q1

REPORT INFORMATION
  Report Type: Spontaneous
  Country: JP (occurrence: JP)
  Receive Date: 20200130
  Receipt Date: 20200130
  Transmission Date: 20200409
  Serious: Yes (Other)
  Sender: FDA-Public Use
  Company Number: JP-ROCHE-2530849

PATIENT
  Age: 38 Year
  Sex: Female

DRUGS (1)
  1. VALIXA [Suspect]
     Active Substance: VALGANCICLOVIR
     Indication: PROPHYLAXIS
     Route: 048
     Dates: start: 20200117

REACTIONS (3)
  - Meningitis [Unknown]
  - Intentional product use issue [Unknown]
  - Off label use [Unknown]
